FAERS Safety Report 9716036 (Version 3)
Quarter: 2014Q1

REPORT INFORMATION
  Report Type: Spontaneous
  Country: US (occurrence: US)
  Receive Date: 20131127
  Receipt Date: 20140220
  Transmission Date: 20141002
  Serious: Yes (Hospitalization, Other)
  Sender: FDA-Public Use
  Company Number: US-ASTELLAS-2013US012303

PATIENT
  Age: 89 Year
  Sex: Male

DRUGS (2)
  1. XTANDI [Suspect]
     Indication: PROSTATE CANCER
     Dosage: 160 MG, UID/QD
     Route: 048
     Dates: start: 20131003
  2. XTANDI [Suspect]
     Dosage: 160 MG, UID/QD
     Route: 048

REACTIONS (8)
  - Renal surgery [Unknown]
  - Hip surgery [Recovered/Resolved]
  - Obstructive uropathy [Recovered/Resolved]
  - Therapeutic procedure [Unknown]
  - Oedema peripheral [Recovered/Resolved]
  - Kidney infection [Recovered/Resolved]
  - Fall [Recovered/Resolved]
  - Rash pruritic [Unknown]
